FAERS Safety Report 20672165 (Version 1)
Quarter: 2022Q2

REPORT INFORMATION
  Report Type: Spontaneous
  Country: US (occurrence: US)
  Receive Date: 20220405
  Receipt Date: 20220405
  Transmission Date: 20220721
  Serious: No
  Sender: FDA-Public Use
  Company Number: US-AMGEN-USASP2022052863

PATIENT
  Age: 80 Year
  Sex: Female

DRUGS (7)
  1. LUMAKRAS [Suspect]
     Active Substance: SOTORASIB
     Indication: Lung neoplasm malignant
     Dosage: 120 MILLIGRAM, 8 TABLETS BY MOUTH EVERY DAY
     Route: 048
     Dates: start: 20220225, end: 2022
  2. DOCUSATE SOD [Concomitant]
     Dosage: 100 MILLIGRAM
  3. FENTANYL [Concomitant]
     Active Substance: FENTANYL
     Dosage: PT7 25 MICROGRAM/HR
  4. LEVOTHYROXINE [Concomitant]
     Active Substance: LEVOTHYROXINE
     Dosage: 50 MICROGRAM
  5. LIDOCAINE [Concomitant]
     Active Substance: LIDOCAINE
     Dosage: HC SOL 2%,SUCRALFATE SUS IG M/10ML
  6. TEMAZEPAM [Concomitant]
     Active Substance: TEMAZEPAM
     Dosage: 15 MILLIGRAM
  7. ZOLEDRONIC [Concomitant]
     Active Substance: ZOLEDRONIC ACID
     Dosage: A CON 4 MG/5 ML

REACTIONS (1)
  - Adverse reaction [Unknown]

NARRATIVE: CASE EVENT DATE: 20220101
